FAERS Safety Report 6436577-4 (Version None)
Quarter: 2009Q4

REPORT INFORMATION
  Report Type: 
  Country: None (occurrence: None)
  Receive Date: 20091111
  Receipt Date: 20091030
  Transmission Date: 20100525
  Serious: Yes (Hospitalization, Other)
  Sender: FDA-Public Use
  Company Number: US-ELI_LILLY_AND_COMPANY-US200911000016

PATIENT
  Sex: Female

DRUGS (14)
  1. FORTEO [Suspect]
     Dosage: UNK, UNK
     Dates: start: 20090601
  2. FORTEO [Suspect]
     Dates: end: 20090901
  3. LANTUS [Concomitant]
  4. METFORMIN HCL [Concomitant]
  5. CALCIUM [Concomitant]
  6. ASPIRIN /SCH/ [Concomitant]
  7. GLIPIZIDE [Concomitant]
  8. GABAPENTIN [Concomitant]
  9. CYMBALTA [Concomitant]
  10. METOPROLOL SUCCINATE [Concomitant]
  11. OMEPRAZOLE [Concomitant]
  12. OXYCODONE HCL [Concomitant]
  13. OXYCONTIN [Concomitant]
  14. AMBIEN [Concomitant]
     Dosage: UNK, AS NEEDED

REACTIONS (10)
  - BLOOD GLUCOSE DECREASED [None]
  - CEREBROVASCULAR ACCIDENT [None]
  - DYSPHAGIA [None]
  - FALL [None]
  - HYPOTENSION [None]
  - ILL-DEFINED DISORDER [None]
  - INFECTION [None]
  - MEMORY IMPAIRMENT [None]
  - SLEEP DISORDER [None]
  - SPEECH DISORDER [None]
